FAERS Safety Report 6721426-7 (Version None)
Quarter: 2010Q2

REPORT INFORMATION
  Report Type: 
  Country: None (occurrence: None)
  Receive Date: 20100512
  Receipt Date: 20100503
  Transmission Date: 20101027
  Serious: Yes (Hospitalization)
  Sender: FDA-Public Use
  Company Number: US-BRISTOL-MYERS SQUIBB COMPANY-15089816

PATIENT
  Age: 37 Year
  Sex: Female

DRUGS (2)
  1. AMOXICILLIN [Suspect]
     Dosage: TABLETS
  2. EPINEPHRINE [Suspect]
     Indication: ANAPHYLACTIC REACTION
     Dosage: 2 DOSES OF 0.5MG (DILUTED; 1:10,000). ALSO GIVEN 1MG UNDILUTED (1:1000).
     Route: 040

REACTIONS (3)
  - ACCIDENTAL OVERDOSE [None]
  - ANAPHYLACTIC REACTION [None]
  - MYOCARDIAL ISCHAEMIA [None]
